FAERS Safety Report 7292671-X (Version None)
Quarter: 2011Q1

REPORT INFORMATION
  Report Type: 
  Country: None (occurrence: None)
  Receive Date: 20110203
  Receipt Date: 20110118
  Transmission Date: 20110831
  Serious: Yes (Death)
  Sender: FDA-Public Use
  Company Number: B0694976A

PATIENT
  Age: 59 Year
  Sex: Female

DRUGS (11)
  1. SERTRALINE (FORMULATION UNKNOWN) (SERTRALINE) [Suspect]
     Dosage: ORAL
     Route: 048
  2. EZETIMIBE/SIMVASTATIN [Suspect]
     Dosage: ORAL
     Route: 048
  3. FENOFIBRATE [Suspect]
     Dosage: ORAL
     Route: 048
  4. LAMOTRIGINE [Suspect]
     Dosage: ORAL
     Route: 048
  5. CLONIDINE [Suspect]
     Dosage: ORAL
     Route: 048
  6. TRANDOLAPRIL [Suspect]
     Dosage: ORAL
     Route: 048
  7. HYDROCODONE BITARTRATE + ACETAMINOPHEN [Suspect]
     Dosage: ORAL
     Route: 048
  8. AMLODIPINE [Suspect]
     Dosage: ORAL
     Route: 048
  9. VERAPAMIL [Suspect]
     Dosage: ORAL
     Route: 048
  10. LEVOTHYROXINE SODIUM [Suspect]
     Dosage: ORAL
     Route: 048
  11. PROMETHAZINE [Suspect]
     Dosage: ORAL
     Route: 048

REACTIONS (1)
  - COMPLETED SUICIDE [None]
